FAERS Safety Report 6082334-0 (Version None)
Quarter: 2009Q1

REPORT INFORMATION
  Report Type: 
  Country: None (occurrence: None)
  Receive Date: 20090218
  Receipt Date: 20090209
  Transmission Date: 20090719
  Serious: Yes (Death, Other)
  Sender: FDA-Public Use
  Company Number: US-ROCHE-613215

PATIENT
  Age: 35 Year
  Sex: Male

DRUGS (5)
  1. INTERFERON ALFA-2A [Suspect]
     Route: 065
  2. RITUXIMAB [Suspect]
     Route: 065
  3. PEGASYS [Suspect]
     Route: 065
  4. 2-CHLORO-2'-DEOXYADENOSINE [Suspect]
     Route: 065
  5. FLUDARABINE PHOSPHATE [Suspect]
     Route: 065

REACTIONS (5)
  - BONE MARROW FAILURE [None]
  - BRONCHOPULMONARY ASPERGILLOSIS [None]
  - CHILLS [None]
  - PYREXIA [None]
  - SEPSIS [None]
